FAERS Safety Report 8608637-0 (Version None)
Quarter: 2012Q3

REPORT INFORMATION
  Report Type: 
  Country: None (occurrence: None)
  Receive Date: 20120809
  Receipt Date: 20120809
  Transmission Date: 20120928
  Serious: Yes (Hospitalization)
  Sender: FDA-Public Use
  Company Number: None

PATIENT
  Sex: Female
  Weight: 91 kg

DRUGS (1)
  1. METHYLENE BLUE 10MG/ML AKORN [Suspect]
     Indication: SCAN WITH CONTRAST
     Dosage: 318MG ONCE IV DRIP
     Route: 041
     Dates: start: 20120214, end: 20120214

REACTIONS (1)
  - SEROTONIN SYNDROME [None]
